FAERS Safety Report 12473969 (Version 1)
Quarter: 2016Q2

REPORT INFORMATION
  Report Type: Report from Study
  Country: US (occurrence: US)
  Receive Date: 20160616
  Receipt Date: 20160616
  Transmission Date: 20160815
  Serious: Yes (Hospitalization)
  Sender: FDA-Public Use
  Company Number: US-ARIAD-2014US003865

PATIENT

DRUGS (2)
  1. ICLUSIG [Suspect]
     Active Substance: PONATINIB
     Dosage: UNK
  2. ICLUSIG [Suspect]
     Active Substance: PONATINIB
     Indication: PLASMA CELL MYELOMA
     Dosage: 45 MG, QD
     Route: 048
     Dates: start: 20140821

REACTIONS (2)
  - Stem cell transplant [Unknown]
  - Off label use [Not Recovered/Not Resolved]
